FAERS Safety Report 8157466-3 (Version None)
Quarter: 2012Q1

REPORT INFORMATION
  Report Type: 
  Country: None (occurrence: None)
  Receive Date: 20120217
  Receipt Date: 20120212
  Transmission Date: 20120608
  Serious: Yes (Other)
  Sender: FDA-Public Use
  Company Number: 2012SP008033

PATIENT
  Sex: Female

DRUGS (2)
  1. PEG-INTRON [Suspect]
     Indication: HEPATITIS C
     Dates: start: 20020101, end: 20020630
  2. RIBAVIRIN [Suspect]
     Indication: HEPATITIS C
     Dates: start: 20020101, end: 20020630

REACTIONS (4)
  - INJECTION SITE HAEMATOMA [None]
  - WHITE BLOOD CELL COUNT DECREASED [None]
  - DEHYDRATION [None]
  - RED BLOOD CELL COUNT DECREASED [None]
